FAERS Safety Report 22171949 (Version 1)
Quarter: 2023Q2

REPORT INFORMATION
  Report Type: Spontaneous
  Country: US (occurrence: US)
  Receive Date: 20230404
  Receipt Date: 20230404
  Transmission Date: 20230721
  Serious: No
  Sender: FDA-Public Use
  Company Number: US-GALDERMA-US2023001634

PATIENT

DRUGS (4)
  1. PROACTIV MD ADAPALENE ACNE TREATMENT [Suspect]
     Active Substance: ADAPALENE
     Indication: Acne
     Dosage: 1 DOSAGE FORM, PRN, DIME SIZE, WHEN NEEDED IT
     Route: 061
     Dates: start: 2022, end: 202212
  2. COSMETICS [Concomitant]
     Active Substance: COSMETICS
     Indication: Acne
     Dosage: 1 DOSAGE FORM, BIW, QUARTER SIZE, 2 OR MORE TIMES A WEEK
     Route: 061
     Dates: start: 2022, end: 202212
  3. Proactiv Redness Relief Serum [Concomitant]
     Indication: Acne
     Dosage: 1 DOSAGE FORM, BIW, QUARTER SIZE, 2 OR MORE TIMES A WEEK
     Route: 061
     Dates: start: 2022, end: 202212
  4. PROACTIV ACNE BODY WASH [Concomitant]
     Active Substance: SALICYLIC ACID
     Indication: Acne
     Dosage: 1 DOSAGE FORM, BIW, QUARTER SIZE, 2 OR MORE TIMES A WEEK
     Route: 061
     Dates: start: 2022, end: 202212

REACTIONS (3)
  - Hypersensitivity [Recovered/Resolved]
  - Rash [Recovered/Resolved]
  - Acne [Recovered/Resolved]

NARRATIVE: CASE EVENT DATE: 20220101
